FAERS Safety Report 5643133-4 (Version None)
Quarter: 2008Q1

REPORT INFORMATION
  Report Type: 
  Country: None (occurrence: None)
  Receive Date: 20080228
  Receipt Date: 20080222
  Transmission Date: 20080703
  Serious: Yes (Hospitalization)
  Sender: FDA-Public Use
  Company Number: GB-ROCHE-549144

PATIENT
  Age: 38 Year
  Sex: Female
  Weight: 76.8 kg

DRUGS (1)
  1. ORLISTAT [Suspect]
     Indication: OBESITY
     Route: 048
     Dates: start: 20071115, end: 20080211

REACTIONS (1)
  - ABORTION SPONTANEOUS [None]
